FAERS Safety Report 6103473-1 (Version None)
Quarter: 2009Q1

REPORT INFORMATION
  Report Type: 
  Country: None (occurrence: None)
  Receive Date: 20090302
  Receipt Date: 20090220
  Transmission Date: 20090719
  Serious: Yes (Other)
  Sender: FDA-Public Use
  Company Number: CIP09000415

PATIENT
  Age: 73 Year
  Sex: Female

DRUGS (3)
  1. ACTONEL [Suspect]
     Indication: OSTEOPOROSIS
     Dosage: 35 MG ONCE WEEKLY, ORAL
     Route: 048
     Dates: start: 20040201, end: 20080601
  2. FOSAMAX [Suspect]
     Indication: OSTEOPOROSIS
     Dosage: ORAL
     Dates: start: 19960101, end: 20040101
  3. TIROXIN (LEVOTHYROXINE SODIUM) [Concomitant]

REACTIONS (3)
  - HIP FRACTURE [None]
  - LOWER LIMB FRACTURE [None]
  - PATHOLOGICAL FRACTURE [None]
